FAERS Safety Report 20597179 (Version 1)
Quarter: 2022Q1

REPORT INFORMATION
  Report Type: Spontaneous
  Country: US (occurrence: US)
  Receive Date: 20220315
  Receipt Date: 20220315
  Transmission Date: 20220423
  Serious: Yes (Hospitalization, Other)
  Sender: FDA-Public Use
  Company Number: US-SLATE RUN PHARMACEUTICALS-22US000968

PATIENT

DRUGS (25)
  1. AZITHROMYCIN [Suspect]
     Active Substance: AZITHROMYCIN
     Indication: Babesiosis
     Dosage: 1000 MILLIGRAM, QD
     Route: 042
     Dates: start: 20200129
  2. AZITHROMYCIN [Suspect]
     Active Substance: AZITHROMYCIN
     Dosage: 500 MILLIGRAM, QD
     Route: 042
     Dates: start: 20191213, end: 20200128
  3. AZITHROMYCIN [Suspect]
     Active Substance: AZITHROMYCIN
     Dosage: 500 MILLIGRAM, QD
     Route: 042
     Dates: start: 20191001, end: 20191114
  4. AZITHROMYCIN [Suspect]
     Active Substance: AZITHROMYCIN
     Dosage: 500 MILLIGRAM, QD
     Route: 042
     Dates: start: 20190917
  5. AZITHROMYCIN [Suspect]
     Active Substance: AZITHROMYCIN
     Dosage: 500 MILLIGRAM, QD
     Route: 042
     Dates: start: 20190828
  6. AZITHROMYCIN [Suspect]
     Active Substance: AZITHROMYCIN
     Dosage: 500 MILLIGRAM, QD
     Route: 042
     Dates: start: 20190329
  7. AZITHROMYCIN [Suspect]
     Active Substance: AZITHROMYCIN
     Dosage: 250 MILLIGRAM, QD
     Route: 042
     Dates: start: 201901, end: 201901
  8. AZITHROMYCIN [Suspect]
     Active Substance: AZITHROMYCIN
     Dosage: 500 MILLIGRAM, QD
     Route: 042
     Dates: start: 201901, end: 201901
  9. AZITHROMYCIN [Suspect]
     Active Substance: AZITHROMYCIN
     Dosage: 500 MILLIGRAM, SINGLE
     Route: 042
     Dates: start: 20190109, end: 201901
  10. ATOVAQUONE [Suspect]
     Active Substance: ATOVAQUONE
     Indication: Babesiosis
     Dosage: 750 MILLIGRAM, QD
     Dates: start: 20190129
  11. ATOVAQUONE [Suspect]
     Active Substance: ATOVAQUONE
     Dosage: 750 MILLIGRAM, BID
     Dates: start: 20191213, end: 20200128
  12. ATOVAQUONE [Suspect]
     Active Substance: ATOVAQUONE
     Dosage: 750 MILLIGRAM, QD
     Dates: start: 20191001, end: 20191114
  13. ATOVAQUONE [Suspect]
     Active Substance: ATOVAQUONE
     Dosage: 750 MILLIGRAM, BID
     Dates: start: 20190917
  14. ATOVAQUONE [Suspect]
     Active Substance: ATOVAQUONE
     Dosage: 750 MILLIGRAM, BID
     Dates: start: 20190828
  15. ATOVAQUONE [Suspect]
     Active Substance: ATOVAQUONE
     Dosage: 750 MILLIGRAM, BID
     Dates: start: 20190329
  16. ATOVAQUONE [Suspect]
     Active Substance: ATOVAQUONE
     Dosage: 750 MILLIGRAM, QD
     Dates: start: 20190109
  17. CLINDAMYCIN [Suspect]
     Active Substance: CLINDAMYCIN
     Indication: Babesiosis
     Dosage: 450 MILLIGRAM, TID
     Dates: start: 20200129
  18. CLINDAMYCIN [Suspect]
     Active Substance: CLINDAMYCIN
     Dosage: 300 MILLIGRAM, TID
     Route: 048
     Dates: start: 20190917
  19. MALARONE [Suspect]
     Active Substance: ATOVAQUONE\PROGUANIL HYDROCHLORIDE
     Indication: Babesiosis
     Dosage: 4 DOSAGE FORM, QD
     Dates: start: 20200129
  20. WHOLE BLOOD [Concomitant]
     Active Substance: WHOLE BLOOD
     Indication: Haemoglobin decreased
     Dosage: 3 DOSAGE FORM
  21. METHOTREXATE [Concomitant]
     Active Substance: METHOTREXATE
     Indication: Granulomatosis with polyangiitis
  22. CYCLOPHOSPHAMIDE [Concomitant]
     Active Substance: CYCLOPHOSPHAMIDE
     Indication: Granulomatosis with polyangiitis
  23. PREDNISONE [Concomitant]
     Active Substance: PREDNISONE
     Indication: Granulomatosis with polyangiitis
     Dosage: 20 MILLIGRAM, QD
  24. PREDNISONE [Concomitant]
     Active Substance: PREDNISONE
     Dosage: 7.5 MILLIGRAM, QD
  25. PREDNISONE [Concomitant]
     Active Substance: PREDNISONE
     Dosage: 7.5-20 MILLIGRAM, QD

REACTIONS (6)
  - Babesiosis [Recovered/Resolved]
  - Granulomatosis with polyangiitis [Unknown]
  - Drug resistance [Unknown]
  - Off label use [Recovered/Resolved]
  - Nausea [Unknown]
  - Diarrhoea [Unknown]

NARRATIVE: CASE EVENT DATE: 20190109
